FAERS Safety Report 20794200 (Version 1)
Quarter: 2022Q2

REPORT INFORMATION
  Report Type: Spontaneous
  Country: DE (occurrence: DE)
  Receive Date: 20220506
  Receipt Date: 20220506
  Transmission Date: 20220721
  Serious: Yes (Hospitalization, Other)
  Sender: FDA-Public Use
  Company Number: DE-BAXTER-2015BAX032232

PATIENT
  Age: 74 Year
  Sex: Male

DRUGS (21)
  1. PIOGLITAZONE [Suspect]
     Active Substance: PIOGLITAZONE
     Indication: Metastatic malignant melanoma
     Dosage: 45 MILLIGRAM
     Route: 048
     Dates: start: 20140909
  2. PIOGLITAZONE [Suspect]
     Active Substance: PIOGLITAZONE
     Dosage: 45 MILLIGRAM
     Route: 048
     Dates: start: 20150610
  3. PIOGLITAZONE [Suspect]
     Active Substance: PIOGLITAZONE
     Dosage: 45 MILLIGRAM
     Route: 048
     Dates: start: 20150313
  4. ETORICOXIB [Suspect]
     Active Substance: ETORICOXIB
     Indication: Metastatic malignant melanoma
     Dosage: 30 MILLIGRAM
     Route: 048
     Dates: start: 20140909
  5. ETORICOXIB [Suspect]
     Active Substance: ETORICOXIB
     Dosage: 30 MILLIGRAM
     Route: 048
     Dates: start: 20150313
  6. ETORICOXIB [Suspect]
     Active Substance: ETORICOXIB
     Dosage: 30 MILLIGRAM
     Route: 048
     Dates: start: 20150610
  7. TEMSIROLIMUS [Suspect]
     Active Substance: TEMSIROLIMUS
     Indication: Metastatic malignant melanoma
     Dosage: 25 MILLIGRAM
     Route: 042
     Dates: start: 20140909
  8. TEMSIROLIMUS [Suspect]
     Active Substance: TEMSIROLIMUS
     Dosage: 25 MILLIGRAM
     Route: 042
     Dates: start: 20150310, end: 20150317
  9. TEMSIROLIMUS [Suspect]
     Active Substance: TEMSIROLIMUS
     Dosage: 25 MILLIGRAM
     Route: 042
     Dates: start: 20150505
  10. TEMSIROLIMUS [Suspect]
     Active Substance: TEMSIROLIMUS
     Dosage: 25 MILLIGRAM
     Route: 042
     Dates: start: 20150602, end: 20150609
  11. TEMSIROLIMUS [Suspect]
     Active Substance: TEMSIROLIMUS
     Dosage: 15 MILLIGRAM
     Route: 042
     Dates: start: 20150623
  12. TROFOSFAMIDE [Suspect]
     Active Substance: TROFOSFAMIDE
     Indication: Metastatic malignant melanoma
     Dosage: 150 MILLIGRAM
     Route: 048
     Dates: start: 20150610
  13. TROFOSFAMIDE [Suspect]
     Active Substance: TROFOSFAMIDE
     Indication: Off label use
     Dosage: 150 MILLIGRAM
     Route: 048
     Dates: start: 20140909
  14. TROFOSFAMIDE [Suspect]
     Active Substance: TROFOSFAMIDE
     Dosage: 150 MILLIGRAM
     Route: 048
     Dates: start: 20150313
  15. HYDROCHLOROTHIAZIDE [Concomitant]
     Active Substance: HYDROCHLOROTHIAZIDE
     Indication: Hypertension
     Dosage: 25 MILLIGRAM, ONCE A DAY
     Route: 048
  16. CIPROFLOXACIN HYDROCHLORIDE [Concomitant]
     Active Substance: CIPROFLOXACIN HYDROCHLORIDE
     Indication: Prophylaxis
     Dosage: 1000 MILLIGRAM, TWO TIMES A DAY
     Route: 048
     Dates: start: 20140930
  17. SPIRONOLACTONE [Concomitant]
     Active Substance: SPIRONOLACTONE
     Indication: Oedema
     Dosage: 25 MILLIGRAM, ONCE A DAY
     Route: 048
     Dates: start: 20140909
  18. PANTOPRAZOLE SODIUM [Concomitant]
     Active Substance: PANTOPRAZOLE SODIUM
     Indication: Prophylaxis
     Dosage: 40 MILLIGRAM, ONCE A DAY
     Route: 048
     Dates: start: 20140909
  19. TOREM RR [Concomitant]
     Indication: Oedema
     Dosage: 30 MILLIGRAM
     Route: 048
     Dates: start: 20140909
  20. TOREM RR [Concomitant]
     Dosage: 15 MILLIGRAM, ONCE A DAY
     Route: 048
     Dates: start: 20140909
  21. TOREM RR [Concomitant]
     Dosage: 10 MILLIGRAM, ONCE A DAY
     Route: 048
     Dates: start: 20141014

REACTIONS (6)
  - Thoracic vertebral fracture [Recovered/Resolved]
  - Perirectal abscess [Recovered/Resolved]
  - Scapula fracture [Recovered/Resolved]
  - Pneumothorax traumatic [Recovered/Resolved]
  - Lumbar vertebral fracture [Recovered/Resolved]
  - Rib fracture [Recovered/Resolved]

NARRATIVE: CASE EVENT DATE: 20150313
